FAERS Safety Report 15029478 (Version 3)
Quarter: 2018Q3

REPORT INFORMATION
  Report Type: Spontaneous
  Country: CZ (occurrence: CZ)
  Receive Date: 20180619
  Receipt Date: 20180706
  Transmission Date: 20181010
  Serious: Yes (Other)
  Sender: FDA-Public Use
  Company Number: CZ-009507513-1806CZE006297

PATIENT
  Age: 4 Year
  Sex: Female
  Weight: 20.5 kg

DRUGS (1)
  1. AERIUS [Suspect]
     Active Substance: DESLORATADINE
     Dosage: 2.5 ML, DAILY IN THE EVENING
     Route: 048
     Dates: start: 20180514, end: 20180519

REACTIONS (1)
  - Hallucination, visual [Unknown]

NARRATIVE: CASE EVENT DATE: 20180520
